FAERS Safety Report 10896968 (Version 1)
Quarter: 2015Q1

REPORT INFORMATION
  Report Type: Spontaneous
  Country: US (occurrence: US)
  Receive Date: 20150309
  Receipt Date: 20150309
  Transmission Date: 20150721
  Serious: Yes (Other)
  Sender: FDA-Public Use
  Company Number: US-ROCHE-1549231

PATIENT
  Age: 57 Year
  Sex: Female

DRUGS (1)
  1. XOLAIR [Suspect]
     Active Substance: OMALIZUMAB
     Indication: ASTHMA
     Route: 058
     Dates: start: 201408, end: 201412

REACTIONS (2)
  - Oedema [Recovered/Resolved]
  - Pleurisy [Recovered/Resolved]

NARRATIVE: CASE EVENT DATE: 201412
